FAERS Safety Report 7494579-3 (Version None)
Quarter: 2011Q2

REPORT INFORMATION
  Report Type: 
  Country: None (occurrence: None)
  Receive Date: 20110520
  Receipt Date: 20110513
  Transmission Date: 20111010
  Serious: Yes (Death, Other)
  Sender: FDA-Public Use
  Company Number: PHHY2010MX63298

PATIENT
  Sex: Female

DRUGS (2)
  1. TENORETIC [Concomitant]
  2. DIOVAN HCT [Suspect]
     Dosage: 80 MG PER DAY
     Route: 048
     Dates: start: 19990101

REACTIONS (4)
  - INFLUENZA [None]
  - ASPIRATION BRONCHIAL [None]
  - RESPIRATORY ARREST [None]
  - INCREASED UPPER AIRWAY SECRETION [None]
